FAERS Safety Report 19206499 (Version 2)
Quarter: 2021Q2

REPORT INFORMATION
  Report Type: Report from Study
  Country: None (occurrence: AR)
  Receive Date: 20210503
  Receipt Date: 20210528
  Transmission Date: 20210717
  Serious: Yes (Life-Threatening, Hospitalization, Other)
  Sender: FDA-Public Use
  Company Number: AR-ABBVIE-21K-007-3886370-00

PATIENT
  Age: 66 Year
  Sex: Male

DRUGS (1)
  1. HUMIRA [Suspect]
     Active Substance: ADALIMUMAB
     Indication: PSORIASIS
     Route: 058
     Dates: start: 20190829

REACTIONS (4)
  - Immunodeficiency [Unknown]
  - COVID-19 [Recovering/Resolving]
  - Pneumonia [Unknown]
  - Medical induction of coma [Unknown]

NARRATIVE: CASE EVENT DATE: 20210308
